FAERS Safety Report 21188614 (Version 1)
Quarter: 2022Q3

REPORT INFORMATION
  Report Type: Spontaneous
  Country: FR (occurrence: FR)
  Receive Date: 20220809
  Receipt Date: 20220809
  Transmission Date: 20221026
  Serious: Yes (Life-Threatening, Other)
  Sender: FDA-Public Use
  Company Number: FR-AFSSAPS-AN20221679

PATIENT
  Age: 53 Year
  Sex: Female

DRUGS (2)
  1. AMOXICILLIN [Suspect]
     Active Substance: AMOXICILLIN
     Indication: Sinusitis
     Dosage: 1 GRAM, 1 TOTAL
     Route: 048
     Dates: start: 20210927, end: 20210927
  2. METHYLPREDNISOLONE [Suspect]
     Active Substance: METHYLPREDNISOLONE
     Indication: Sinusitis
     Dosage: 60 MILLIGRAM, 1 TOTAL
     Route: 048
     Dates: start: 20210927, end: 20210927

REACTIONS (2)
  - Laryngeal oedema [Recovered/Resolved]
  - Anaphylactic reaction [Recovered/Resolved]

NARRATIVE: CASE EVENT DATE: 20210927
